FAERS Safety Report 18184954 (Version 1)
Quarter: 2020Q3

REPORT INFORMATION
  Report Type: Report from Study
  Country: US (occurrence: US)
  Receive Date: 20200824
  Receipt Date: 20200824
  Transmission Date: 20201103
  Serious: Yes (Hospitalization)
  Sender: FDA-Public Use
  Company Number: US-GILEAD-2020-0491296

PATIENT
  Age: 46 Year
  Sex: Female

DRUGS (15)
  1. GABAPENTIN. [Concomitant]
     Active Substance: GABAPENTIN
  2. SYMBICORT [Concomitant]
     Active Substance: BUDESONIDE\FORMOTEROL FUMARATE DIHYDRATE
  3. OXYCODONE/APAP [OXYCODONE HYDROCHLORIDE;PARACETAMOL] [Concomitant]
  4. TOBI PODHALER [Concomitant]
     Active Substance: TOBRAMYCIN
  5. ORILISSA [Concomitant]
     Active Substance: ELAGOLIX SODIUM
  6. CLOTRIMAZOLE / BETAMETH [Concomitant]
     Active Substance: BETAMETHASONE DIPROPIONATE\CLOTRIMAZOLE
  7. PULMOZYME [Concomitant]
     Active Substance: DORNASE ALFA
  8. TRIKAFTA [Concomitant]
     Active Substance: ELEXACAFTOR\IVACAFTOR\TEZACAFTOR
  9. AZTREONAM LYSINE [Suspect]
     Active Substance: AZTREONAM LYSINE
     Indication: CYSTIC FIBROSIS LUNG
     Dosage: 75 MG, TID; 28 D ON AND 28 D OFF
     Route: 055
     Dates: start: 20180421
  10. APIDRA [Concomitant]
     Active Substance: INSULIN GLULISINE
  11. XOPENEX HFA [Concomitant]
     Active Substance: LEVALBUTEROL TARTRATE
  12. SOD CHL 7% NEPHRON [Concomitant]
  13. FLUCONAZOLE. [Concomitant]
     Active Substance: FLUCONAZOLE
  14. LOSARTAN/HCT [Concomitant]
     Active Substance: HYDROCHLOROTHIAZIDE\LOSARTAN POTASSIUM
  15. MEDROXYPROGESTERON ACETATE [Concomitant]
     Active Substance: MEDROXYPROGESTERONE ACETATE

REACTIONS (3)
  - Renal function test abnormal [Unknown]
  - Limb injury [Unknown]
  - Chromaturia [Unknown]

NARRATIVE: CASE EVENT DATE: 20200818
